FAERS Safety Report 8145309-3 (Version None)
Quarter: 2012Q1

REPORT INFORMATION
  Report Type: 
  Country: None (occurrence: None)
  Receive Date: 20120217
  Receipt Date: 20120210
  Transmission Date: 20120608
  Serious: Yes (Hospitalization)
  Sender: FDA-Public Use
  Company Number: US-US-EMD SERONO, INC.-7059181

PATIENT
  Sex: Female

DRUGS (1)
  1. REBIF [Suspect]
     Indication: MULTIPLE SCLEROSIS
     Route: 058
     Dates: start: 20090102

REACTIONS (5)
  - VISUAL IMPAIRMENT [None]
  - NAUSEA [None]
  - VERTIGO [None]
  - VOMITING [None]
  - INJECTION SITE ERYTHEMA [None]
